FAERS Safety Report 6063379-3 (Version None)
Quarter: 2009Q1

REPORT INFORMATION
  Report Type: 
  Country: None (occurrence: None)
  Receive Date: 20090203
  Receipt Date: 20090126
  Transmission Date: 20090719
  Serious: Yes (Other)
  Sender: FDA-Public Use
  Company Number: US-WYE-H07876809

PATIENT
  Sex: Male
  Weight: 90.8 kg

DRUGS (24)
  1. EFFEXOR [Suspect]
     Indication: DEPRESSION
     Dosage: UNKNOWN
     Route: 048
  2. LEVOTHYROXINE [Concomitant]
     Indication: THYROID DISORDER
  3. AMBIEN [Concomitant]
     Indication: SLEEP DISORDER
  4. HYDROCHLOROTHIAZIDE [Concomitant]
  5. HYDROCODONE BITARTRATE + ACETAMINOPHEN [Concomitant]
     Indication: BACK PAIN
  6. CARISOPRODOL [Concomitant]
     Indication: BACK PAIN
  7. LISINOPRIL [Concomitant]
     Indication: HYPERTENSION
  8. LEXAPRO [Suspect]
     Indication: DEPRESSION
     Dosage: UNKNOWN
     Route: 048
     Dates: start: 20031001, end: 20070501
  9. LEXAPRO [Suspect]
     Indication: ANXIETY
  10. XANAX [Suspect]
     Indication: ANXIETY
     Dosage: UNKNOWN
     Dates: start: 20031001, end: 20070501
  11. XANAX [Suspect]
     Indication: DEPRESSION
  12. XANAX [Suspect]
     Indication: SLEEP DISORDER
  13. ZOLOFT [Suspect]
     Dosage: UNKNOWN
     Dates: start: 20031001
  14. NEURONTIN [Suspect]
     Indication: AMNESIA
     Dosage: UNKNOWN
     Dates: start: 20031001
  15. NEURONTIN [Suspect]
     Indication: RESTLESS LEGS SYNDROME
  16. TRAZODONE HCL [Suspect]
     Dosage: UNKNOWN
     Dates: start: 20031001
  17. SEROQUEL [Suspect]
     Indication: DEPRESSION
     Dosage: UNKNOWN
     Dates: start: 20031001, end: 20070501
  18. SEROQUEL [Suspect]
     Indication: ANXIETY
  19. WELLBUTRIN [Suspect]
     Indication: DEPRESSION
     Dosage: UNKNOWN
     Dates: start: 20031001, end: 20070501
  20. WELLBUTRIN [Suspect]
     Indication: ANXIETY
  21. RESTORIL [Suspect]
     Indication: DEPRESSION
     Dosage: UNKNOWN
     Dates: start: 20031001, end: 20070501
  22. CYMBALTA [Suspect]
     Indication: DEPRESSION
     Dosage: UNKNOWN
     Dates: start: 20031001, end: 20070501
  23. FENOFIBRATE [Concomitant]
     Indication: BLOOD TRIGLYCERIDES INCREASED
  24. FENOFIBRATE [Concomitant]
     Indication: BLOOD CHOLESTEROL INCREASED

REACTIONS (53)
  - ABNORMAL BEHAVIOUR [None]
  - ACTIVITIES OF DAILY LIVING IMPAIRED [None]
  - AMNESIA [None]
  - ANGER [None]
  - ANOREXIA [None]
  - ANXIETY [None]
  - APHASIA [None]
  - ASBESTOSIS [None]
  - ATTENTION DEFICIT/HYPERACTIVITY DISORDER [None]
  - BLOOD CHOLESTEROL INCREASED [None]
  - BLOOD TRIGLYCERIDES INCREASED [None]
  - BRUXISM [None]
  - CONDITION AGGRAVATED [None]
  - CONSTIPATION [None]
  - CONVULSION [None]
  - DEPRESSION [None]
  - DISORIENTATION [None]
  - DRUG WITHDRAWAL SYNDROME [None]
  - EMOTIONAL DISTRESS [None]
  - FEELING ABNORMAL [None]
  - HALLUCINATION [None]
  - HEADACHE [None]
  - HYPERHIDROSIS [None]
  - HYPERTENSION [None]
  - HYPOTHYROIDISM [None]
  - INSOMNIA [None]
  - INTENTIONAL OVERDOSE [None]
  - LETHARGY [None]
  - MENTAL DISORDER [None]
  - MUSCLE SPASMS [None]
  - MUSCLE TWITCHING [None]
  - NIGHT SWEATS [None]
  - NIGHTMARE [None]
  - PANCREATITIS [None]
  - PANIC REACTION [None]
  - PARANOIA [None]
  - PYREXIA [None]
  - RENAL FAILURE [None]
  - RESTLESS LEGS SYNDROME [None]
  - ROAD TRAFFIC ACCIDENT [None]
  - SCREAMING [None]
  - SEDATION [None]
  - SLEEP APNOEA SYNDROME [None]
  - SOCIAL AVOIDANT BEHAVIOUR [None]
  - SUICIDAL IDEATION [None]
  - SUICIDE ATTEMPT [None]
  - TACHYCARDIA [None]
  - TARDIVE DYSKINESIA [None]
  - TERMINAL INSOMNIA [None]
  - TREMOR [None]
  - URINARY INCONTINENCE [None]
  - VOMITING [None]
  - WEIGHT DECREASED [None]
